FAERS Safety Report 21497927 (Version 1)
Quarter: 2022Q4

REPORT INFORMATION
  Report Type: Report from Study
  Country: US (occurrence: US)
  Receive Date: 20221024
  Receipt Date: 20221024
  Transmission Date: 20230112
  Serious: Yes (Hospitalization, Other)
  Sender: FDA-Public Use
  Company Number: US-BoehringerIngelheim-2021-BI-098927

PATIENT
  Age: 77 Year
  Sex: Male

DRUGS (2)
  1. OFEV [Suspect]
     Active Substance: NINTEDANIB
     Indication: Idiopathic pulmonary fibrosis
     Route: 048
     Dates: start: 20201022, end: 20210416
  2. OFEV [Suspect]
     Active Substance: NINTEDANIB
     Route: 048

REACTIONS (14)
  - Cardiac failure congestive [Unknown]
  - Kidney infection [Unknown]
  - Pancreatic failure [Unknown]
  - Weight decreased [Unknown]
  - Diarrhoea [Unknown]
  - Fall [Unknown]
  - Cough [Unknown]
  - Fluid retention [Unknown]
  - Cellulitis [Unknown]
  - Pyrexia [Unknown]
  - Peripheral swelling [Unknown]
  - Blister [Unknown]
  - Pruritus [Unknown]
  - Pleural effusion [Unknown]

NARRATIVE: CASE EVENT DATE: 20220701
